FAERS Safety Report 19890947 (Version 1)
Quarter: 2021Q3

REPORT INFORMATION
  Report Type: Spontaneous
  Country: US (occurrence: US)
  Receive Date: 20210928
  Receipt Date: 20210928
  Transmission Date: 20211014
  Serious: No
  Sender: FDA-Public Use
  Company Number: US-ASTRAZENECA-2021A721432

PATIENT
  Sex: Female

DRUGS (1)
  1. PULMICORT FLEXHALER [Suspect]
     Active Substance: BUDESONIDE
     Indication: COVID-19
     Dosage: 90 MCG 2 PUFFS TWICE A DAY
     Route: 055
     Dates: start: 20210907

REACTIONS (6)
  - Drug ineffective [Unknown]
  - Cough [Not Recovered/Not Resolved]
  - Device defective [Unknown]
  - Device physical property issue [Unknown]
  - Incorrect dose administered by device [Unknown]
  - Dyspnoea [Not Recovered/Not Resolved]
